FAERS Safety Report 22242629 (Version 1)
Quarter: 2023Q2

REPORT INFORMATION
  Report Type: Spontaneous
  Country: CN (occurrence: CN)
  Receive Date: 20230424
  Receipt Date: 20230424
  Transmission Date: 20230721
  Serious: Yes (Other)
  Sender: FDA-Public Use
  Company Number: CN-HALOCARBON LIFE SCIENCES, LLC-20230400012

PATIENT
  Age: 57 Year
  Sex: Female

DRUGS (10)
  1. SEVOFLURANE [Suspect]
     Active Substance: SEVOFLURANE
     Indication: Anaesthesia
     Dosage: UNK PERCENT
  2. PROPOFOL [Suspect]
     Active Substance: PROPOFOL
     Indication: Anaesthesia
     Dosage: 4 UNK
  3. REMIFENTANIL [Suspect]
     Active Substance: REMIFENTANIL
     Indication: Anaesthesia
     Dosage: 0.1 UNK
  4. ETOMIDATE [Suspect]
     Active Substance: ETOMIDATE
     Indication: Anaesthesia
     Dosage: 20 MICROGRAM
  5. SUFENTANIL [Suspect]
     Active Substance: SUFENTANIL
     Indication: Anaesthesia
     Dosage: 20 MICROGRAM
  6. ATRACURIUM [Suspect]
     Active Substance: ATRACURIUM
     Indication: Neuromuscular blockade
     Dosage: 20 MILLIGRAM
  7. ATRACURIUM [Suspect]
     Active Substance: ATRACURIUM
     Dosage: 5 UNK
  8. MIDAZOLAM [Suspect]
     Active Substance: MIDAZOLAM
     Indication: Sedation
     Dosage: 2 MILLIGRAM
  9. TROPISETRON [Concomitant]
     Active Substance: TROPISETRON
     Indication: Prophylaxis of nausea and vomiting
     Dosage: 0.2 MILLIGRAM
  10. ATROPINE [Concomitant]
     Active Substance: ATROPINE
     Indication: Prophylaxis of nausea and vomiting

REACTIONS (1)
  - Pupil fixed [Recovered/Resolved]
